FAERS Safety Report 6856741-X (Version None)
Quarter: 2010Q2

REPORT INFORMATION
  Report Type: 
  Country: None (occurrence: None)
  Receive Date: 20100630
  Receipt Date: 20100407
  Transmission Date: 20101027
  Serious: No
  Sender: FDA-Public Use
  Company Number: 1000013045

PATIENT
  Age: 67 Year
  Sex: Female

DRUGS (3)
  1. BYSTOLIC [Suspect]
     Indication: HYPERTENSION
     Dosage: ( 1 IN 1 D), ORAL
     Route: 048
     Dates: start: 20100326
  2. METFORMIN [Concomitant]
  3. ASPIRIN [Concomitant]

REACTIONS (1)
  - RASH [None]
